FAERS Safety Report 8082457-0 (Version None)
Quarter: 2012Q1

REPORT INFORMATION
  Report Type: 
  Country: None (occurrence: None)
  Receive Date: 20120127
  Receipt Date: 20110214
  Transmission Date: 20120608
  Serious: No
  Sender: FDA-Public Use
  Company Number: US-ABBOTT-11P-163-0706386-00

PATIENT
  Sex: Female
  Weight: 90.8 kg

DRUGS (6)
  1. FOLIC ACID [Concomitant]
     Indication: PRODUCT USED FOR UNKNOWN INDICATION
  2. TRAMADOL HCL [Concomitant]
     Indication: PAIN
  3. HUMIRA [Suspect]
     Dates: start: 20110124
  4. METHOTREXATE [Concomitant]
     Indication: RHEUMATOID ARTHRITIS
  5. TRAZODONE HCL [Concomitant]
     Indication: INSOMNIA
  6. HUMIRA [Suspect]
     Indication: RHEUMATOID ARTHRITIS
     Dates: start: 20100601, end: 20100801

REACTIONS (9)
  - CELLULITIS [None]
  - OEDEMA PERIPHERAL [None]
  - TENDERNESS [None]
  - ERYTHEMA [None]
  - PNEUMONIA [None]
  - RESPIRATORY TRACT INFECTION [None]
  - SKIN EXFOLIATION [None]
  - JOINT SWELLING [None]
  - SKIN DISCOLOURATION [None]
